FAERS Safety Report 10062025 (Version 3)
Quarter: 2014Q2

REPORT INFORMATION
  Report Type: Spontaneous
  Country: DE (occurrence: None)
  Receive Date: 20140403
  Receipt Date: 20140416
  Transmission Date: 20141212
  Serious: Yes (Hospitalization)
  Sender: FDA-Public Use
  Company Number: 7278903

PATIENT
  Age: 55 Year
  Sex: Female

DRUGS (2)
  1. EUTHYROX (LEVOTHYROXINE SODIUM) (LEVOTHYROXINE SODIUM) [Suspect]
     Indication: THYROIDECTOMY
     Dosage: 1 IN 1 D
     Route: 048
     Dates: start: 2006
  2. CALCIUM (CALCIUM) (1000 MG) (CALCIUM) [Concomitant]
     Dates: start: 2010

REACTIONS (12)
  - Impaired work ability [None]
  - Cardiovascular disorder [None]
  - Hospitalisation [None]
  - Speech disorder [None]
  - Head discomfort [None]
  - Paraesthesia [None]
  - Renal disorder [None]
  - Abdominal discomfort [None]
  - Tremor [None]
  - Headache [None]
  - Musculoskeletal discomfort [None]
  - Paraesthesia [None]
